FAERS Safety Report 4912174-4 (Version None)
Quarter: 2006Q1

REPORT INFORMATION
  Report Type: 
  Country: None (occurrence: None)
  Receive Date: 20060215
  Receipt Date: 20050829
  Transmission Date: 20060701
  Serious: No
  Sender: FDA-Public Use
  Company Number: US-GLAXOSMITHKLINE-A0572232A

PATIENT
  Age: 52 Year
  Sex: Female

DRUGS (3)
  1. VALTREX [Suspect]
     Dosage: 1G TWICE PER DAY
     Route: 048
     Dates: start: 20050826
  2. SPORANOX [Concomitant]
  3. LEXAPRO [Concomitant]

REACTIONS (3)
  - FLUID RETENTION [None]
  - HEADACHE [None]
  - THIRST [None]
